FAERS Safety Report 6657787-7 (Version None)
Quarter: 2010Q1

REPORT INFORMATION
  Report Type: 
  Country: None (occurrence: None)
  Receive Date: 20100325
  Receipt Date: 20100310
  Transmission Date: 20100710
  Serious: Yes (Other)
  Sender: FDA-Public Use
  Company Number: 2010AL001504

PATIENT
  Age: 34 Year
  Sex: Female

DRUGS (2)
  1. VENLAFAXINE HCL [Suspect]
     Indication: DEPRESSION
     Dosage: 75 MG; QD
     Dates: start: 20090415, end: 20090515
  2. SEROQUEL [Concomitant]

REACTIONS (5)
  - ANXIETY [None]
  - PSYCHOTIC DISORDER [None]
  - RESTLESSNESS [None]
  - SCHIZOPHRENIA [None]
  - SELF-INJURIOUS IDEATION [None]
